FAERS Safety Report 19860972 (Version 1)
Quarter: 2021Q3

REPORT INFORMATION
  Report Type: Report from Study
  Country: JP (occurrence: JP)
  Receive Date: 20210920
  Receipt Date: 20210920
  Transmission Date: 20211014
  Serious: Yes (Other)
  Sender: FDA-Public Use
  Company Number: JP-PFIZER INC-202101182840

PATIENT

DRUGS (5)
  1. DOXORUBICIN HCL [Suspect]
     Active Substance: DOXORUBICIN HYDROCHLORIDE
     Indication: ADRENOCORTICAL CARCINOMA
     Dosage: 40 MG/M2, CYCLIC (ON DAY 1) (REPEATED EVERY 4 WEEKS)
  2. MITOTANE [Suspect]
     Active Substance: MITOTANE
     Dosage: 4000 MG/DL, CYCLIC (OR MAXIMUM?TOLERATED DOSE)
     Route: 048
  3. MITOTANE [Suspect]
     Active Substance: MITOTANE
     Indication: ADRENOCORTICAL CARCINOMA
     Dosage: 1500 MG/DL, CYCLIC (LOW STARTING DOSE)
     Route: 048
  4. ETOPOSIDE. [Suspect]
     Active Substance: ETOPOSIDE
     Indication: ADRENOCORTICAL CARCINOMA
     Dosage: 100 MG/M2, CYCLIC (ON DAYS 2?4) (REPEATED EVERY 4 WEEKS)
  5. CISPLATIN. [Suspect]
     Active Substance: CISPLATIN
     Indication: ADRENOCORTICAL CARCINOMA
     Dosage: 40 MG/M2, CYCLIC (ON DAYS 3 AND 4) (REPEATED EVERY 4 WEEKS)

REACTIONS (3)
  - Fatigue [Unknown]
  - Neurotoxicity [Unknown]
  - Infection [Unknown]
